FAERS Safety Report 6710469-5 (Version None)
Quarter: 2010Q2

REPORT INFORMATION
  Report Type: 
  Country: None (occurrence: None)
  Receive Date: 20100504
  Receipt Date: 20100430
  Transmission Date: 20101027
  Serious: Yes (Other)
  Sender: FDA-Public Use
  Company Number: CHPA2010US07635

PATIENT
  Age: 3 Year
  Sex: Male
  Weight: 17.687 kg

DRUGS (2)
  1. TRIAMINIC-D MULTISYMPTOM COLD (NCH) [Suspect]
     Dosage: 0.5 TSP, UNK, FOR 2 DAYS
     Route: 048
     Dates: start: 20100401, end: 20100401
  2. TRIAMINIC-D MULTISYMPTOM COLD (NCH) [Suspect]
     Dosage: 0.5 TSP, UNK
     Route: 048

REACTIONS (7)
  - ASTHMA [None]
  - CONDITION AGGRAVATED [None]
  - INCORRECT DOSE ADMINISTERED [None]
  - OVERDOSE [None]
  - PNEUMONIA [None]
  - PRODUCT CONTAINER ISSUE [None]
  - RESPIRATORY DISORDER [None]
